FAERS Safety Report 16190373 (Version 2)
Quarter: 2019Q2

REPORT INFORMATION
  Report Type: Report from Study
  Country: US (occurrence: US)
  Receive Date: 20190412
  Receipt Date: 20190514
  Transmission Date: 20190711
  Serious: Yes (Hospitalization)
  Sender: FDA-Public Use
  Company Number: US-B.I. PHARMACEUTICALS,INC./RIDGEFIELD-2018-BI-009978

PATIENT
  Age: 59 Year
  Sex: Male

DRUGS (1)
  1. OFEV [Suspect]
     Active Substance: NINTEDANIB
     Indication: IDIOPATHIC PULMONARY FIBROSIS
     Route: 048
     Dates: start: 20170201

REACTIONS (8)
  - Fluid overload [Recovered/Resolved]
  - Nausea [Not Recovered/Not Resolved]
  - Intervertebral disc protrusion [Unknown]
  - Abdominal pain upper [Not Recovered/Not Resolved]
  - Hypokalaemia [Recovered/Resolved]
  - Pulmonary arterial hypertension [Recovered/Resolved]
  - Oedema [Recovered/Resolved]
  - Diarrhoea [Not Recovered/Not Resolved]

NARRATIVE: CASE EVENT DATE: 20190216
